FAERS Safety Report 9476131 (Version 2)
Quarter: 2013Q3

REPORT INFORMATION
  Report Type: Report from Study
  Country: BD (occurrence: BD)
  Receive Date: 20130826
  Receipt Date: 20130826
  Transmission Date: 20140515
  Serious: Yes (Death, Other)
  Sender: FDA-Public Use
  Company Number: PHHY2013BD089939

PATIENT
  Age: 65 Year
  Sex: Male

DRUGS (1)
  1. EXELON PATCH [Suspect]
     Indication: DEMENTIA
     Dosage: 4.6 MG, DAILY
     Route: 062
     Dates: start: 20130113

REACTIONS (4)
  - Cerebrovascular accident [Fatal]
  - Hemiplegia [Fatal]
  - Diabetes mellitus [Unknown]
  - Blood pressure increased [Unknown]
